FAERS Safety Report 26087945 (Version 1)
Quarter: 2025Q4

REPORT INFORMATION
  Report Type: Spontaneous
  Country: US (occurrence: US)
  Receive Date: 20251125
  Receipt Date: 20251125
  Transmission Date: 20260118
  Serious: No
  Sender: FRESENIUS KABI
  Company Number: US-FreseniusKabi-FK202515543

PATIENT
  Sex: Female

DRUGS (7)
  1. MOXIFLOXACIN [Suspect]
     Active Substance: MOXIFLOXACIN
     Indication: Mycobacterium chelonae infection
  2. MOXIFLOXACIN [Suspect]
     Active Substance: MOXIFLOXACIN
     Indication: Skin mass
  3. OMADACYCLINE [Suspect]
     Active Substance: OMADACYCLINE
     Indication: Mycobacterium chelonae infection
  4. OMADACYCLINE [Suspect]
     Active Substance: OMADACYCLINE
     Indication: Skin mass
  5. PREDNISONE [Concomitant]
     Active Substance: PREDNISONE
     Indication: Systemic lupus erythematosus
  6. AMIKACIN [Concomitant]
     Active Substance: AMIKACIN
     Indication: Mycobacterium chelonae infection
  7. AMIKACIN [Concomitant]
     Active Substance: AMIKACIN
     Indication: Skin mass

REACTIONS (3)
  - Diarrhoea [Recovered/Resolved]
  - Abdominal pain [Recovered/Resolved]
  - Nausea [Recovered/Resolved]
